FAERS Safety Report 7482841-X (Version None)
Quarter: 2011Q2

REPORT INFORMATION
  Report Type: 
  Country: None (occurrence: None)
  Receive Date: 20110516
  Receipt Date: 20110327
  Transmission Date: 20111010
  Serious: Yes (Disabling, Congenital Anomaly, Other)
  Sender: FDA-Public Use
  Company Number: PHHY2011GB35218

PATIENT

DRUGS (7)
  1. ATORVASTATIN [Concomitant]
     Dosage: UNK UKN, UNK
  2. PROGRAF [Concomitant]
     Dosage: UNK UKN, UNK
  3. CELLCEPT [Concomitant]
     Dosage: UNK UKN, UNK
  4. METHOTREXATE [Suspect]
     Dosage: FOETAL DRUG EXPOSURE VIA FATHER
  5. BISOPROLOL FUMARATE [Concomitant]
     Dosage: UNK UKN, UNK
  6. LANSOPRAZOLE [Concomitant]
     Dosage: UNK UKN, UNK
  7. RAMIPRIL [Concomitant]
     Dosage: UNK UKN, UNK

REACTIONS (3)
  - TERATOGENICITY [None]
  - DRUG EXPOSURE DURING PREGNANCY [None]
  - CONGENITAL HAND MALFORMATION [None]
